FAERS Safety Report 6465453-6 (Version None)
Quarter: 2009Q4

REPORT INFORMATION
  Report Type: 
  Country: None (occurrence: None)
  Receive Date: 20091201
  Receipt Date: 20081118
  Transmission Date: 20100525
  Serious: No
  Sender: FDA-Public Use
  Company Number: US-AMGEN-KDL309106

PATIENT
  Sex: Male
  Weight: 103.3 kg

DRUGS (3)
  1. ENBREL [Suspect]
     Indication: PSORIASIS
     Route: 058
     Dates: start: 20051028, end: 20081014
  2. UNSPECIFIED TOPICAL PRODUCT [Concomitant]
  3. ULTRAVATE [Concomitant]

REACTIONS (5)
  - CELLULITIS [None]
  - DRUG INEFFECTIVE [None]
  - HIGH DENSITY LIPOPROTEIN DECREASED [None]
  - PIGMENTATION DISORDER [None]
  - PSORIASIS [None]
